FAERS Safety Report 12386558 (Version 1)
Quarter: 2016Q2

REPORT INFORMATION
  Report Type: Spontaneous
  Country: RS (occurrence: RS)
  Receive Date: 20160519
  Receipt Date: 20160519
  Transmission Date: 20160815
  Serious: Yes (Other)
  Sender: FDA-Public Use
  Company Number: RS-DEPOMED, INC.-RS-2016DEP009633

PATIENT
  Age: 55 Year
  Sex: Male

DRUGS (1)
  1. DICLOFENAC POTASSIUM. [Suspect]
     Active Substance: DICLOFENAC POTASSIUM
     Indication: PRODUCT USED FOR UNKNOWN INDICATION
     Dosage: UNK

REACTIONS (9)
  - Fibrosis [Recovering/Resolving]
  - Intestinal diaphragm disease [Recovering/Resolving]
  - Rectal polyp [Recovering/Resolving]
  - Colitis [Recovering/Resolving]
  - Diarrhoea [Recovered/Resolved]
  - Large intestinal ulcer [Recovering/Resolving]
  - Mucosal inflammation [Recovering/Resolving]
  - Large intestinal stenosis [Recovering/Resolving]
  - Oedema [Recovering/Resolving]

NARRATIVE: CASE EVENT DATE: 201402
